FAERS Safety Report 9443944 (Version 5)
Quarter: 2013Q3

REPORT INFORMATION
  Report Type: Report from Study
  Country: US (occurrence: US)
  Receive Date: 20130807
  Receipt Date: 20130830
  Transmission Date: 20140515
  Serious: Yes (Hospitalization)
  Sender: FDA-Public Use
  Company Number: US-ROCHE-1257471

PATIENT
  Age: 64 Year
  Sex: Male
  Weight: 100 kg

DRUGS (13)
  1. BEVACIZUMAB [Suspect]
     Indication: COLORECTAL CANCER METASTATIC
     Dosage: MOST RECENT DOSE PRIOR TO SAE WAS TAKEN ON 30/JUL/2013.
     Route: 065
     Dates: start: 20130522
  2. IRINOTECAN [Suspect]
     Indication: COLORECTAL CANCER METASTATIC
     Dosage: MOST RECENT DOSE PRIOR TO SAE WAS TAKEN ON 30/JUL/2013.
     Route: 065
     Dates: start: 20130522
  3. FLUOROURACIL [Suspect]
     Indication: COLORECTAL CANCER METASTATIC
     Dosage: MOST RECENT DOSE PRIOR TO SAE WAS TAKEN ON 30/JUL/2013.
     Route: 040
     Dates: start: 20130522
  4. FLUOROURACIL [Suspect]
     Dosage: MOST RECENT DOSE PRIOR TO SAE WAS TAKEN ON 30/JUL/2013.
     Route: 042
     Dates: start: 20130522
  5. CALCIUM FOLINATE [Suspect]
     Indication: COLORECTAL CANCER METASTATIC
     Dosage: MOST RECENT DOSE PRIOR TO SAE WAS TAKEN ON 30/JUL/2013.
     Route: 065
     Dates: start: 20130522
  6. COUMADIN [Suspect]
     Indication: DEEP VEIN THROMBOSIS
     Route: 065
  7. MAGNESIUM OXIDE [Concomitant]
     Route: 048
  8. MAGNESIUM OXIDE [Concomitant]
     Route: 048
  9. LOVENOX [Concomitant]
  10. PREDNISONE [Concomitant]
     Route: 065
  11. OMEPRAZOLE [Concomitant]
  12. POTASSIUM CHLORIDE [Concomitant]
     Dosage: IVPB PREMIX 10MEQ
     Route: 042
  13. POTASSIUM CHLORIDE [Concomitant]
     Dosage: LIQUID 20MEQ
     Route: 048

REACTIONS (1)
  - Epistaxis [Recovered/Resolved with Sequelae]
